FAERS Safety Report 5066450-8 (Version None)
Quarter: 2006Q3

REPORT INFORMATION
  Report Type: 
  Country: None (occurrence: None)
  Receive Date: 20060728
  Receipt Date: 20060728
  Transmission Date: 20061208
  Serious: Yes (Other)
  Sender: FDA-Public Use
  Company Number: None

PATIENT
  Age: 39 Year
  Sex: Male
  Weight: 83.9154 kg

DRUGS (2)
  1. HEAD + SHOULDER ^DRY SCALP CARE^  DANDRUFF SHAMPOO FOR FREQUENT USE  P [Suspect]
     Dosage: HANDFUL REGULARY
     Dates: start: 20060613, end: 20060613
  2. PROACTIV SOLUTION REPARING ACNE TREATMENT RODEN AND FIELDS [Suspect]
     Dosage: SMALL AMOUNT REGULARLY
     Dates: start: 20060613, end: 20060613

REACTIONS (2)
  - EYE SWELLING [None]
  - HORDEOLUM [None]
